FAERS Safety Report 24836486 (Version 5)
Quarter: 2025Q2

REPORT INFORMATION
  Report Type: Report from Study
  Country: US (occurrence: US)
  Receive Date: 20250113
  Receipt Date: 20250407
  Transmission Date: 20250717
  Serious: Yes (Hospitalization, Other)
  Sender: SUNOVION
  Company Number: US-SUMITOMO PHARMA SWITZERLAND GMBH-2025SPA000128

PATIENT

DRUGS (2)
  1. ORGOVYX [Suspect]
     Active Substance: RELUGOLIX
     Indication: Prostate cancer
     Route: 048
     Dates: start: 20241218, end: 20241218
  2. ORGOVYX [Suspect]
     Active Substance: RELUGOLIX
     Dosage: 120 MG, QD
     Route: 048
     Dates: start: 20241219

REACTIONS (11)
  - Atrial fibrillation [Unknown]
  - Heart rate irregular [Unknown]
  - Pain [Unknown]
  - Dysstasia [Unknown]
  - Hepatic enzyme increased [Unknown]
  - Emotional disorder [Unknown]
  - Peripheral coldness [Unknown]
  - Somnolence [Unknown]
  - Increased appetite [Unknown]
  - Diarrhoea [Unknown]
  - Constipation [Unknown]
